FAERS Safety Report 6860764-4 (Version None)
Quarter: 2010Q3

REPORT INFORMATION
  Report Type: 
  Country: None (occurrence: None)
  Receive Date: 20100715
  Receipt Date: 20100709
  Transmission Date: 20110219
  Serious: Yes (Hospitalization)
  Sender: FDA-Public Use
  Company Number: DSA_43482_2010

PATIENT
  Sex: Female

DRUGS (8)
  1. XENAZINE [Suspect]
     Indication: HUNTINGTON'S DISEASE
     Dosage: (25 MG ORAL), (25 MG QD ORAL), (37.5 MG QD ORAL)
     Route: 048
     Dates: start: 20100222, end: 20100301
  2. XENAZINE [Suspect]
     Indication: HUNTINGTON'S DISEASE
     Dosage: (25 MG ORAL), (25 MG QD ORAL), (37.5 MG QD ORAL)
     Route: 048
     Dates: start: 20100624, end: 20100701
  3. XENAZINE [Suspect]
     Indication: HUNTINGTON'S DISEASE
     Dosage: (25 MG ORAL), (25 MG QD ORAL), (37.5 MG QD ORAL)
     Route: 048
     Dates: start: 20100701, end: 20100701
  4. SEROQUEL [Concomitant]
  5. CLONAZEPAM [Concomitant]
  6. PAXIL [Concomitant]
  7. BIRTH CONTROL [Concomitant]
  8. VALIUM [Concomitant]

REACTIONS (7)
  - ABNORMAL BEHAVIOUR [None]
  - DYSPHAGIA [None]
  - FEELING ABNORMAL [None]
  - PULMONARY OEDEMA [None]
  - SCREAMING [None]
  - STARING [None]
  - THROAT TIGHTNESS [None]
